FAERS Safety Report 14775463 (Version 1)
Quarter: 2018Q2

REPORT INFORMATION
  Report Type: Spontaneous
  Country: US (occurrence: US)
  Receive Date: 20180418
  Receipt Date: 20180418
  Transmission Date: 20180711
  Serious: Yes (Life-Threatening, Hospitalization)
  Sender: FDA-Public Use
  Company Number: US-MYLANLABS-2018M1023983

PATIENT
  Age: 19 Year
  Sex: Male

DRUGS (2)
  1. ALPRAZOLAM. [Suspect]
     Active Substance: ALPRAZOLAM
     Indication: PRODUCT USED FOR UNKNOWN INDICATION
     Route: 065
  2. METHADONE [Suspect]
     Active Substance: METHADONE HYDROCHLORIDE
     Indication: PRODUCT USED FOR UNKNOWN INDICATION
     Route: 065

REACTIONS (8)
  - Septic shock [Unknown]
  - Aspiration [Unknown]
  - Acute respiratory distress syndrome [Unknown]
  - Pneumonia staphylococcal [Unknown]
  - Accidental overdose [Unknown]
  - Unresponsive to stimuli [Recovered/Resolved]
  - Cyanosis [Unknown]
  - Respiratory failure [Unknown]
